FAERS Safety Report 5638062-6 (Version None)
Quarter: 2008Q1

REPORT INFORMATION
  Report Type: 
  Country: None (occurrence: None)
  Receive Date: 20080226
  Receipt Date: 20080215
  Transmission Date: 20080703
  Serious: Yes (Hospitalization, Other)
  Sender: FDA-Public Use
  Company Number: US-JNJFOC-20080201166

PATIENT
  Sex: Female
  Weight: 79.15 kg

DRUGS (8)
  1. REMICADE [Suspect]
     Dosage: 2 DOSES
     Route: 042
  2. REMICADE [Suspect]
     Indication: ANKYLOSING SPONDYLITIS
     Route: 042
  3. SIMVASTATIN [Concomitant]
     Route: 065
  4. EFFEXOR [Concomitant]
     Route: 065
  5. DICLOFENAC SODIUM [Concomitant]
     Route: 065
  6. DARVOCET [Concomitant]
     Indication: PAIN
     Route: 065
  7. VICODIN [Concomitant]
     Indication: PAIN
     Route: 065
  8. ANTIDEPRESSANT [Concomitant]
     Route: 065

REACTIONS (5)
  - DYSPNOEA [None]
  - FACIAL PALSY [None]
  - HYPOAESTHESIA [None]
  - MUSCULAR WEAKNESS [None]
  - SWOLLEN TONGUE [None]
